FAERS Safety Report 12937413 (Version 1)
Quarter: 2016Q4

REPORT INFORMATION
  Report Type: Spontaneous
  Country: US (occurrence: US)
  Receive Date: 20161114
  Receipt Date: 20161114
  Transmission Date: 20170207
  Serious: No
  Sender: FDA-Public Use
  Company Number: US-GALDERMA-US16001360

PATIENT
  Age: 45 Year
  Sex: Male

DRUGS (1)
  1. CLOBEX [Suspect]
     Active Substance: CLOBETASOL PROPIONATE
     Indication: PSORIASIS
     Route: 061
     Dates: start: 2014, end: 201411

REACTIONS (3)
  - Underdose [Not Recovered/Not Resolved]
  - Intentional product use issue [Recovered/Resolved]
  - Psoriasis [Not Recovered/Not Resolved]
